FAERS Safety Report 20962317 (Version 1)
Quarter: 2022Q2

REPORT INFORMATION
  Report Type: Spontaneous
  Country: US (occurrence: None)
  Receive Date: 20220613
  Receipt Date: 20220613
  Transmission Date: 20220720
  Serious: Yes (Disabling, Other)
  Sender: FDA-Public Use
  Company Number: None

PATIENT
  Age: 62 Year
  Sex: Female
  Weight: 82.35 kg

DRUGS (3)
  1. DIETARY SUPPLEMENT [Suspect]
     Active Substance: DIETARY SUPPLEMENT
     Indication: Osteoarthritis
     Dosage: FREQUENCY : TWICE A DAY;?
     Route: 048
  2. DEXAMETHASONE [Suspect]
     Active Substance: DEXAMETHASONE
  3. DICLOFENAC [Suspect]
     Active Substance: DICLOFENAC

REACTIONS (7)
  - Myalgia [None]
  - Arthralgia [None]
  - Dizziness [None]
  - Agitation [None]
  - Polyuria [None]
  - Polydipsia [None]
  - Blood glucose increased [None]

NARRATIVE: CASE EVENT DATE: 20220602
